FAERS Safety Report 8515287-3 (Version None)
Quarter: 2012Q3

REPORT INFORMATION
  Report Type: 
  Country: None (occurrence: None)
  Receive Date: 20120717
  Receipt Date: 20120705
  Transmission Date: 20120928
  Serious: No
  Sender: FDA-Public Use
  Company Number: US-ASTRAZENECA-2012SE45727

PATIENT
  Age: 56 Year
  Sex: Male
  Weight: 81.6 kg

DRUGS (4)
  1. SINGULAIR [Concomitant]
  2. CLARITIN [Concomitant]
     Dosage: ONCE
  3. ASPIRIN [Concomitant]
  4. SYMBICORT [Suspect]
     Indication: ASTHMA
     Dosage: 160/4.5 TWO PUFFS ONCE A DAY
     Route: 055

REACTIONS (2)
  - OFF LABEL USE [None]
  - THERAPEUTIC RESPONSE UNEXPECTED [None]
